FAERS Safety Report 20462040 (Version 1)
Quarter: 2022Q1

REPORT INFORMATION
  Report Type: Spontaneous
  Country: US (occurrence: None)
  Receive Date: 20220211
  Receipt Date: 20220211
  Transmission Date: 20220423
  Serious: Yes (Death)
  Sender: FDA-Public Use
  Company Number: None

PATIENT
  Age: 73 Year
  Sex: Male

DRUGS (2)
  1. DEVICE [Suspect]
     Active Substance: DEVICE
     Indication: Epistaxis
     Route: 045
     Dates: start: 20211221, end: 20211223
  2. AFRIN [Suspect]
     Active Substance: OXYMETAZOLINE
     Dates: start: 20211221, end: 20211221

REACTIONS (5)
  - Shock [None]
  - Hypercapnia [None]
  - Obstructive airways disorder [None]
  - Pneumonia [None]
  - Sepsis [None]

NARRATIVE: CASE EVENT DATE: 20211221
